FAERS Safety Report 6987172-X (Version None)
Quarter: 2010Q3

REPORT INFORMATION
  Report Type: 
  Country: None (occurrence: None)
  Receive Date: 20100916
  Receipt Date: 20100907
  Transmission Date: 20110219
  Serious: Yes (Other)
  Sender: FDA-Public Use
  Company Number: CH-PFIZER INC-2010112548

PATIENT
  Sex: Male
  Weight: 1.89 kg

DRUGS (3)
  1. XANAX [Suspect]
     Dosage: 0.5 MG, 1X/DAY
     Route: 064
     Dates: end: 20091201
  2. XANAX [Suspect]
     Dosage: 0.25 MG, 1X/DAY
     Route: 064
     Dates: start: 20091201, end: 20091203
  3. ZOLOFT [Suspect]
     Indication: DEPRESSION
     Dosage: 50 MG, 1X/DAY
     Route: 064

REACTIONS (3)
  - DRUG EXPOSURE DURING PREGNANCY [None]
  - FOETAL GROWTH RESTRICTION [None]
  - PREMATURE BABY [None]
